FAERS Safety Report 8990241 (Version 2)
Quarter: 2016Q3

REPORT INFORMATION
  Report Type: Spontaneous
  Country: JP (occurrence: JP)
  Receive Date: 20121228
  Receipt Date: 20160928
  Transmission Date: 20161109
  Serious: Yes (Death, Life-Threatening, Other)
  Sender: FDA-Public Use
  Company Number: JP-OTSUKA-JP-2012-15998

PATIENT
  Age: 92 Year
  Sex: Male

DRUGS (2)
  1. ALDACTONE A [Concomitant]
     Active Substance: SPIRONOLACTONE
     Indication: OEDEMA
     Dosage: 25 MG, QD
     Route: 048
     Dates: start: 20120703, end: 20120808
  2. PLETAAL OD TABLETS 100MG [Suspect]
     Active Substance: CILOSTAZOL
     Indication: PERIPHERAL ARTERIAL OCCLUSIVE DISEASE
     Dosage: 100 MG, BID
     Route: 048
     Dates: start: 20120707, end: 20120808

REACTIONS (4)
  - Fall [Unknown]
  - Subdural haematoma [Fatal]
  - Cerebral haemorrhage [Fatal]
  - Head injury [Fatal]

NARRATIVE: CASE EVENT DATE: 20120807
